FAERS Safety Report 8841993 (Version 1)
Quarter: 2012Q4

REPORT INFORMATION
  Report Type: 
  Country: US (occurrence: US)
  Receive Date: 20121016
  Receipt Date: 20121016
  Transmission Date: 20130627
  Serious: No
  Sender: FDA-Public Use
  Company Number: US-BAYER-2012-105695

PATIENT
  Age: 24 Year
  Sex: Female

DRUGS (1)
  1. GADAVIST [Suspect]
     Dosage: 9 ml, UNK
     Route: 042
     Dates: start: 20121008, end: 20121008

REACTIONS (2)
  - Nausea [None]
  - Dysgeusia [None]
